FAERS Safety Report 4505836-4 (Version None)
Quarter: 2004Q4

REPORT INFORMATION
  Report Type: 
  Country: None (occurrence: None)
  Receive Date: 20041025
  Receipt Date: 20040615
  Transmission Date: 20050328
  Serious: Yes (Other)
  Sender: FDA-Public Use
  Company Number: US-JNJFOC-20040304952

PATIENT
  Age: 39 Year
  Sex: Male

DRUGS (8)
  1. REMICADE [Suspect]
     Indication: CROHN'S DISEASE
     Dosage: 3 DOSES CIRCA FEB-APRIL 2002 2 DOSES JAN/FEB 2004 INTRAVENOUS; SEE IMAGE
     Route: 042
     Dates: start: 20020201
  2. REMICADE [Suspect]
     Indication: CROHN'S DISEASE
     Dosage: 3 DOSES CIRCA FEB-APRIL 2002 2 DOSES JAN/FEB 2004 INTRAVENOUS; SEE IMAGE
     Route: 042
     Dates: start: 20040101
  3. REMICADE [Suspect]
     Indication: CROHN'S DISEASE
     Dosage: 3 DOSES CIRCA FEB-APRIL 2002 2 DOSES JAN/FEB 2004 INTRAVENOUS; SEE IMAGE
     Route: 042
     Dates: start: 20040317
  4. ACETAMINOPHEN [Concomitant]
  5. PRILOSEC [Concomitant]
  6. ZOLOFT [Concomitant]
  7. BEXTRA [Concomitant]
  8. LIBRAX [Concomitant]

REACTIONS (1)
  - ANAPHYLACTOID REACTION [None]
